FAERS Safety Report 5007414-X (Version None)
Quarter: 2006Q2

REPORT INFORMATION
  Report Type: 
  Country: None (occurrence: None)
  Receive Date: 20060518
  Receipt Date: 20060518
  Transmission Date: 20061013
  Serious: Yes (Death)
  Sender: FDA-Public Use
  Company Number: None

PATIENT
  Sex: Male
  Weight: 158.759 kg

DRUGS (16)
  1. LOVENOX [Suspect]
     Indication: DEEP VEIN THROMBOSIS
     Dosage: 150 MG Q24H SQ  1 DOSE
     Route: 058
     Dates: start: 20060514, end: 20060515
  2. LOVENOX [Suspect]
     Dosage: 130 MGQ12H SQ
     Route: 058
     Dates: start: 20060515, end: 20060515
  3. TYLENOL W/ CODEINE NO. 3 [Concomitant]
  4. DOCUSATE [Concomitant]
  5. ATENOLOL [Concomitant]
  6. DEXAMETHASONE TAB [Concomitant]
  7. FUROSEMIDE [Concomitant]
  8. LOVASTATIN [Concomitant]
  9. ASPIRIN [Concomitant]
  10. VALSARTAN [Concomitant]
  11. FLUOXETINE [Concomitant]
  12. POTASSIUM [Concomitant]
  13. FENOFIBRATE [Concomitant]
  14. GLIMEPIRIDE [Concomitant]
  15. DILTIAZEM [Concomitant]
  16. METOLAZONE [Concomitant]

REACTIONS (2)
  - CEREBROVASCULAR ACCIDENT [None]
  - HEADACHE [None]
